FAERS Safety Report 9255639 (Version 1)
Quarter: 2013Q2

REPORT INFORMATION
  Report Type: Spontaneous
  Country: IT (occurrence: IT)
  Receive Date: 20130425
  Receipt Date: 20130425
  Transmission Date: 20140414
  Serious: Yes (Other)
  Sender: FDA-Public Use
  Company Number: PHHY2013IT038887

PATIENT
  Sex: Female

DRUGS (5)
  1. FUROSEMIDE [Suspect]
     Dosage: 1 DF, DAILY
     Route: 048
     Dates: start: 20120220, end: 20130219
  2. EUTIROX [Concomitant]
  3. TORVAST [Concomitant]
  4. DIBASE [Concomitant]
  5. ALLOPURINOL [Concomitant]

REACTIONS (2)
  - Presyncope [Unknown]
  - Hypotension [Unknown]
